FAERS Safety Report 9724620 (Version 1)
Quarter: 2013Q4

REPORT INFORMATION
  Report Type: Spontaneous
  Country: US (occurrence: US)
  Receive Date: 20131202
  Receipt Date: 20131202
  Transmission Date: 20140711
  Serious: No
  Sender: FDA-Public Use
  Company Number: US-AMGEN-USASP2013081911

PATIENT
  Age: 49 Year
  Sex: Male

DRUGS (4)
  1. ENBREL [Suspect]
     Indication: PSORIATIC ARTHROPATHY
     Dosage: 50 MG, QWK
     Route: 065
     Dates: start: 20030101
  2. METHOTREXATE [Concomitant]
     Dosage: 12.5 MG, QWK
     Dates: start: 2003
  3. HUMIRA [Concomitant]
     Dosage: UNK
  4. SIMPONI [Concomitant]
     Dosage: UNK

REACTIONS (3)
  - Joint swelling [Unknown]
  - Arthralgia [Unknown]
  - Drug ineffective [Unknown]
